FAERS Safety Report 18496477 (Version 1)
Quarter: 2020Q4

REPORT INFORMATION
  Report Type: Spontaneous
  Country: AU (occurrence: AU)
  Receive Date: 20201112
  Receipt Date: 20201112
  Transmission Date: 20210114
  Serious: Yes (Other)
  Sender: FDA-Public Use
  Company Number: AU-GLAXOSMITHKLINE-AU2020GSK217710

PATIENT
  Age: 39 Year
  Sex: Male

DRUGS (1)
  1. LAMOTRIGINE. [Suspect]
     Active Substance: LAMOTRIGINE
     Indication: PRODUCT USED FOR UNKNOWN INDICATION
     Dosage: 100 MG, QD (4 WEEKS EARLIER)

REACTIONS (19)
  - Oropharyngeal pain [Recovered/Resolved]
  - Acute kidney injury [Recovered/Resolved]
  - Glomerular filtration rate increased [Recovered/Resolved]
  - Blood alkaline phosphatase increased [Recovered/Resolved]
  - Fatigue [Recovered/Resolved]
  - Lichenoid keratosis [Recovered/Resolved]
  - Thrombocytopenia [Recovered/Resolved]
  - Skin oedema [Recovered/Resolved]
  - Drug reaction with eosinophilia and systemic symptoms [Recovered/Resolved]
  - Body temperature increased [Unknown]
  - Tubulointerstitial nephritis [Recovered/Resolved]
  - Gamma-glutamyltransferase increased [Recovered/Resolved]
  - Alanine aminotransferase increased [Recovered/Resolved]
  - Eczema [Recovered/Resolved]
  - Face oedema [Unknown]
  - Lymphocytosis [Recovered/Resolved]
  - Pyrexia [Recovered/Resolved]
  - Rash [Recovered/Resolved]
  - Epstein-Barr virus infection [Recovered/Resolved]
